FAERS Safety Report 5581237-5 (Version None)
Quarter: 2007Q4

REPORT INFORMATION
  Report Type: 
  Country: None (occurrence: None)
  Receive Date: 20071227
  Receipt Date: 20070101
  Transmission Date: 20080405
  Serious: Yes (Other)
  Sender: FDA-Public Use
  Company Number: 02100-EUR-07-0184

PATIENT
  Age: 63 Year
  Sex: Male

DRUGS (4)
  1. CILOSTAZOL [Suspect]
     Indication: INTERMITTENT CLAUDICATION
     Dosage: 200 MG, ORAL
     Route: 048
     Dates: start: 20070418
  2. ACETYLSALICYLIC ACID SRT [Concomitant]
  3. BETA-BLOCKING-AGENTS [Concomitant]
  4. SIMVASTATIN [Concomitant]

REACTIONS (1)
  - RETINAL ARTERY EMBOLISM [None]
